FAERS Safety Report 4698853-5 (Version None)
Quarter: 2005Q2

REPORT INFORMATION
  Report Type: 
  Country: None (occurrence: None)
  Receive Date: 20050623
  Receipt Date: 20050609
  Transmission Date: 20051028
  Serious: Yes (Other)
  Sender: FDA-Public Use
  Company Number: 2005083216

PATIENT
  Sex: Male

DRUGS (1)
  1. ALDACTONE [Suspect]
     Indication: ILL-DEFINED DISORDER

REACTIONS (3)
  - GYNAECOMASTIA [None]
  - SYNCOPE VASOVAGAL [None]
  - THERAPY NON-RESPONDER [None]
